FAERS Safety Report 16115803 (Version 6)
Quarter: 2019Q3

REPORT INFORMATION
  Report Type: Spontaneous
  Country: KR (occurrence: KR)
  Receive Date: 20190326
  Receipt Date: 20190702
  Transmission Date: 20191004
  Serious: Yes (Hospitalization)
  Sender: FDA-Public Use
  Company Number: KR-009507513-1903KOR009530

PATIENT
  Sex: Male

DRUGS (11)
  1. KEYTRUDA [Suspect]
     Active Substance: PEMBROLIZUMAB
     Dosage: QUANTITY 2, DAYS 1
     Dates: start: 20190416
  2. EMEND [Concomitant]
     Active Substance: APREPITANT
  3. KEYTRUDA [Suspect]
     Active Substance: PEMBROLIZUMAB
     Dosage: QUANTITY 2, DAYS 1
     Dates: start: 20190508, end: 20190508
  4. KEYTRUDA [Suspect]
     Active Substance: PEMBROLIZUMAB
     Dosage: QUANTITY: 2 ; DAYS 1
     Dates: start: 20190619, end: 20190619
  5. PEMETREXED DISODIUM [Concomitant]
     Active Substance: PEMETREXED DISODIUM
     Indication: NON-SMALL CELL LUNG CANCER
     Dosage: QUANTITY 1, DAYS 1
     Dates: start: 20190305
  6. KEYTRUDA [Suspect]
     Active Substance: PEMBROLIZUMAB
     Dosage: QUANTITY 2, DAYS 1
     Dates: start: 20190326
  7. KEYTRUDA [Suspect]
     Active Substance: PEMBROLIZUMAB
     Indication: NON-SMALL CELL LUNG CANCER
     Dosage: QUANTITY 2, DAYS 1
     Dates: start: 20190305
  8. CARBOPLATIN. [Concomitant]
     Active Substance: CARBOPLATIN
     Indication: NON-SMALL CELL LUNG CANCER
     Dosage: QUANTITY 2, DAYS 1
     Dates: start: 20190305
  9. KEYTRUDA [Suspect]
     Active Substance: PEMBROLIZUMAB
     Dosage: 100 MG, QUANTITY 2, DAYS 1
     Dates: start: 20190529, end: 20190529
  10. EMEND [Concomitant]
     Active Substance: APREPITANT
     Dosage: QUANTITY: 1; DAYS 1
     Dates: start: 20190305
  11. ALOXI [Concomitant]
     Active Substance: PALONOSETRON HYDROCHLORIDE
     Dosage: QUANTITY: 1, DAYS: 1
     Dates: start: 20190305

REACTIONS (4)
  - Adverse event [Unknown]
  - Adverse event [Unknown]
  - Inappropriate schedule of product administration [Unknown]
  - Adverse event [Unknown]

NARRATIVE: CASE EVENT DATE: 201903
